FAERS Safety Report 22950853 (Version 3)
Quarter: 2023Q4

REPORT INFORMATION
  Report Type: Spontaneous
  Country: GB (occurrence: GB)
  Receive Date: 20230916
  Receipt Date: 20231109
  Transmission Date: 20240109
  Serious: Yes (Death)
  Sender: FDA-Public Use
  Company Number: None

PATIENT
  Sex: Male

DRUGS (5)
  1. FLUOXETINE [Suspect]
     Active Substance: FLUOXETINE HYDROCHLORIDE
     Indication: Anxiety
     Dosage: 60MG ONCE DAILY
     Dates: start: 202102
  2. AMISULPRIDE [Suspect]
     Active Substance: AMISULPRIDE
     Indication: Schizophrenia
     Dosage: 300MG QDS
     Dates: start: 20220701
  3. CLOZAPINE [Suspect]
     Active Substance: CLOZAPINE
     Indication: Schizophrenia
     Dosage: 125MG MANE AND 200MG NOCTE
  4. LORAZEPAM [Concomitant]
     Active Substance: LORAZEPAM
     Indication: Anxiety
     Dosage: 1MG BD PRN MAX 2MG IN 24HRS
  5. PREGABALIN [Concomitant]
     Active Substance: PREGABALIN
     Indication: Anxiety

REACTIONS (5)
  - Unresponsive to stimuli [Fatal]
  - Toxicity to various agents [Fatal]
  - Drug interaction [Fatal]
  - Death [Fatal]
  - Medication error [Fatal]

NARRATIVE: CASE EVENT DATE: 20220729
